FAERS Safety Report 12848145 (Version 1)
Quarter: 2016Q4

REPORT INFORMATION
  Report Type: Spontaneous
  Country: US (occurrence: US)
  Receive Date: 20161014
  Receipt Date: 20161014
  Transmission Date: 20170207
  Serious: No
  Sender: FDA-Public Use
  Company Number: US-JNJFOC-20160713625

PATIENT
  Age: 4 Month
  Sex: Female
  Weight: 8.16 kg

DRUGS (1)
  1. INFANTS TYLENOL [Suspect]
     Active Substance: ACETAMINOPHEN
     Indication: PYREXIA
     Dosage: TWICE.
     Route: 048
     Dates: start: 20160714, end: 20160714

REACTIONS (1)
  - Regurgitation [Recovered/Resolved]

NARRATIVE: CASE EVENT DATE: 20160714
